FAERS Safety Report 19137504 (Version 1)
Quarter: 2021Q2

REPORT INFORMATION
  Report Type: Spontaneous
  Country: US (occurrence: US)
  Receive Date: 20210415
  Receipt Date: 20210415
  Transmission Date: 20210717
  Serious: No
  Sender: FDA-Public Use
  Company Number: US-AMGEN-USASP2021054064

PATIENT
  Age: 70 Year
  Sex: Female

DRUGS (6)
  1. EVISTA [Concomitant]
     Active Substance: RALOXIFENE HYDROCHLORIDE
  2. COQ10 [ASCORBIC ACID;BETACAROTENE;CUPRIC OXIDE;MANGANESE SULFATE;SELEN [Concomitant]
  3. PROLIA [Suspect]
     Active Substance: DENOSUMAB
     Indication: PRODUCT USED FOR UNKNOWN INDICATION
     Dosage: UNK
     Route: 065
     Dates: start: 20200406
  4. LITHIUM. [Concomitant]
     Active Substance: LITHIUM
  5. ZETIA [Concomitant]
     Active Substance: EZETIMIBE
  6. VITAMIN D [COLECALCIFEROL] [Concomitant]
     Active Substance: CHOLECALCIFEROL

REACTIONS (10)
  - Dyspnoea [Unknown]
  - Rash pruritic [Unknown]
  - Rash erythematous [Unknown]
  - Abdominal pain upper [Unknown]
  - Pain in extremity [Unknown]
  - Myalgia [Unknown]
  - Skin burning sensation [Unknown]
  - Hypoaesthesia [Not Recovered/Not Resolved]
  - Back pain [Unknown]
  - Flatulence [Unknown]

NARRATIVE: CASE EVENT DATE: 202004
